FAERS Safety Report 7576552-X (Version None)
Quarter: 2011Q2

REPORT INFORMATION
  Report Type: 
  Country: None (occurrence: None)
  Receive Date: 20110628
  Receipt Date: 20110613
  Transmission Date: 20111010
  Serious: No
  Sender: FDA-Public Use
  Company Number: US-B.I. PHARMACEUTICALS,INC./RIDGEFIELD-2011-BP-15304BP

PATIENT
  Age: 69 Year
  Sex: Male

DRUGS (15)
  1. PRADAXA [Suspect]
     Indication: ATRIAL FIBRILLATION
     Dosage: 150 MG
     Route: 048
     Dates: start: 20110506
  2. MAGNESIUM CITRATE [Concomitant]
     Indication: HYPERTENSION
     Dosage: 500 MG
     Route: 048
  3. PRASTERONE [Concomitant]
     Dosage: 25 MG
     Route: 048
  4. ASCORBIC ACID [Concomitant]
     Indication: ROUTINE HEALTH MAINTENANCE
     Dosage: 1500 MG
     Route: 048
  5. ALLOPURINOL [Concomitant]
     Indication: GOUT
     Dosage: 100 MG
     Route: 048
  6. MELATONIN [Concomitant]
     Indication: INSOMNIA
     Dosage: 3 MG
     Route: 048
  7. ZINC [Concomitant]
     Indication: ROUTINE HEALTH MAINTENANCE
     Dosage: 150 MG
     Route: 048
  8. GABA [Concomitant]
     Indication: INSOMNIA
     Route: 048
  9. CARVEDILOL [Concomitant]
     Dosage: 3.175 MG
     Route: 048
  10. SAW PALMETTO [Concomitant]
     Indication: PROPHYLAXIS
     Dosage: 320 MG
     Route: 048
  11. LUNESTA [Concomitant]
     Indication: INSOMNIA
     Dosage: 5 MG
     Route: 048
  12. AVODART [Concomitant]
     Indication: BENIGN PROSTATIC HYPERPLASIA
     Dosage: 0.5 MG
     Route: 048
  13. VITAMIN D [Concomitant]
     Indication: ROUTINE HEALTH MAINTENANCE
     Dosage: 5000 U
     Route: 048
  14. L5-HYDROXYTRYPTOPHAN [Concomitant]
     Indication: INSOMNIA
     Dosage: 220 MG
     Route: 048
  15. TESTOSTERONE CYPIONATE [Concomitant]
     Indication: ROUTINE HEALTH MAINTENANCE
     Dosage: 14.2857 MG
     Route: 051

REACTIONS (5)
  - ABDOMINAL PAIN UPPER [None]
  - CONSTIPATION [None]
  - ARTHRALGIA [None]
  - HAEMATURIA [None]
  - DIARRHOEA [None]
